FAERS Safety Report 20923306 (Version 4)
Quarter: 2022Q3

REPORT INFORMATION
  Report Type: Report from Study
  Country: US (occurrence: US)
  Receive Date: 20220607
  Receipt Date: 20220905
  Transmission Date: 20221027
  Serious: No
  Sender: FDA-Public Use
  Company Number: US-NOVARTISTESTPH-NVSC2022US130038

PATIENT
  Age: 47 Year
  Sex: Female

DRUGS (1)
  1. KESIMPTA [Suspect]
     Active Substance: OFATUMUMAB
     Indication: Multiple sclerosis
     Dosage: 20 MG, QMO
     Route: 058
     Dates: start: 20220506

REACTIONS (6)
  - Fall [Recovering/Resolving]
  - Wrist fracture [Recovering/Resolving]
  - Hand fracture [Recovering/Resolving]
  - Sinus congestion [Unknown]
  - Joint swelling [Unknown]
  - Alopecia [Not Recovered/Not Resolved]

NARRATIVE: CASE EVENT DATE: 20220513
